FAERS Safety Report 21754823 (Version 1)
Quarter: 2022Q4

REPORT INFORMATION
  Report Type: Report from Study
  Country: US (occurrence: US)
  Receive Date: 20221220
  Receipt Date: 20221220
  Transmission Date: 20230113
  Serious: No
  Sender: FDA-Public Use
  Company Number: US-ABBVIE-4201157

PATIENT
  Sex: Female

DRUGS (1)
  1. HUMIRA [Suspect]
     Active Substance: ADALIMUMAB
     Indication: Product used for unknown indication
     Dosage: ONSET FOR HUMIRA DID NOT SHOWN ANY RESULTS WAS 2022
     Route: 058
     Dates: start: 202202, end: 202205

REACTIONS (1)
  - Drug ineffective [Unknown]
